FAERS Safety Report 4376330-9 (Version None)
Quarter: 2004Q2

REPORT INFORMATION
  Report Type: 
  Country: None (occurrence: None)
  Receive Date: 20040603
  Receipt Date: 20031027
  Transmission Date: 20050107
  Serious: Yes (Hospitalization, Other)
  Sender: FDA-Public Use
  Company Number: 200319338US

PATIENT
  Age: 84 Year
  Sex: Female
  Weight: 51 kg

DRUGS (2)
  1. LOVENOX [Suspect]
     Indication: CARDIAC VALVE DISEASE
     Dosage: 30 MG BID SC
     Route: 058
     Dates: start: 20020303
  2. UNSPECIFIED MEDICATIONS [Concomitant]

REACTIONS (3)
  - INJECTION SITE HAEMORRHAGE [None]
  - INJECTION SITE PAIN [None]
  - THROMBOSIS [None]
